FAERS Safety Report 5730790-7 (Version None)
Quarter: 2008Q2

REPORT INFORMATION
  Report Type: 
  Country: None (occurrence: None)
  Receive Date: 20080502
  Receipt Date: 20080423
  Transmission Date: 20081010
  Serious: Yes (Hospitalization)
  Sender: FDA-Public Use
  Company Number: 027131

PATIENT
  Age: 19 Year
  Sex: Female

DRUGS (5)
  1. IBUPROFEN [Suspect]
     Indication: HEADACHE
  2. KETOROLAC (KETOROLAC) [Concomitant]
  3. METOCLOPRAMIDE (METOCLOPRAMIDE) [Concomitant]
  4. CEFTRIAXONE [Concomitant]
  5. CIPROFLOXACIN HCL [Concomitant]

REACTIONS (12)
  - BLOOD CREATININE INCREASED [None]
  - BLOOD PRESSURE DIASTOLIC DECREASED [None]
  - CHOLECYSTITIS [None]
  - DILATATION INTRAHEPATIC DUCT ACQUIRED [None]
  - HEADACHE [None]
  - HEART RATE INCREASED [None]
  - HEPATITIS CHOLESTATIC [None]
  - NO THERAPEUTIC RESPONSE [None]
  - PAIN IN EXTREMITY [None]
  - SEPSIS [None]
  - STEVENS-JOHNSON SYNDROME [None]
  - URINARY TRACT INFECTION [None]
